FAERS Safety Report 11225243 (Version 1)
Quarter: 2015Q2

REPORT INFORMATION
  Report Type: Spontaneous
  Country: US (occurrence: US)
  Receive Date: 20150629
  Receipt Date: 20150629
  Transmission Date: 20150821
  Serious: Yes (Other)
  Sender: FDA-Public Use
  Company Number: US-PFIZER INC-2015211992

PATIENT
  Age: 63 Year
  Sex: Female

DRUGS (1)
  1. NORVASC [Suspect]
     Active Substance: AMLODIPINE BESYLATE
     Dosage: UNK

REACTIONS (12)
  - Coma [Unknown]
  - Drug hypersensitivity [Unknown]
  - Cough [Unknown]
  - Tremor [Unknown]
  - Facial pain [Unknown]
  - Asthenia [Unknown]
  - Hypertension [Unknown]
  - Fatigue [Unknown]
  - Joint swelling [Unknown]
  - Chills [Unknown]
  - Pyrexia [Unknown]
  - Blood calcium increased [Unknown]
